FAERS Safety Report 5276597-9 (Version None)
Quarter: 2007Q1

REPORT INFORMATION
  Report Type: 
  Country: None (occurrence: None)
  Receive Date: 20070327
  Receipt Date: 20070316
  Transmission Date: 20070707
  Serious: Yes (Other)
  Sender: FDA-Public Use
  Company Number: CH-ELI_LILLY_AND_COMPANY-CH200703003401

PATIENT
  Sex: Female
  Weight: 2.33 kg

DRUGS (8)
  1. ZYPREXA [Suspect]
     Dosage: UNK, UNK
     Route: 064
     Dates: start: 20041123, end: 20050617
  2. ZYPREXA [Suspect]
     Dosage: UNK, UNKNOWN
     Dates: start: 20041110
  3. EFFEXOR [Concomitant]
     Route: 064
     Dates: start: 20041123, end: 20050617
  4. CLORAZEPIC ACID [Concomitant]
     Route: 064
     Dates: start: 20041123, end: 20050617
  5. SEROPRAM [Concomitant]
     Route: 064
  6. NOZINAN [Concomitant]
     Route: 064
  7. ACETAMINOPHEN [Concomitant]
     Route: 064
  8. IRFEN [Concomitant]
     Route: 064

REACTIONS (3)
  - DRUG EXPOSURE DURING PREGNANCY [None]
  - DRUG WITHDRAWAL SYNDROME NEONATAL [None]
  - SMALL FOR DATES BABY [None]
